FAERS Safety Report 7109639-6 (Version None)
Quarter: 2010Q4

REPORT INFORMATION
  Report Type: 
  Country: None (occurrence: None)
  Receive Date: 20101115
  Receipt Date: 20101115
  Transmission Date: 20110411
  Serious: Yes (Other)
  Sender: FDA-Public Use
  Company Number: None

PATIENT
  Age: 49 Year
  Sex: Female
  Weight: 146.8 kg

DRUGS (26)
  1. ABILIFY [Suspect]
     Indication: DEPRESSION
     Dosage: 20 MG ONCE PER DAY ORAL TABLET-047
     Route: 048
     Dates: start: 20080101, end: 20100701
  2. LEXAPRO [Concomitant]
  3. DEPAKOTE [Concomitant]
  4. VITIMIN E [Concomitant]
  5. GABAPENTIN [Concomitant]
  6. METFORMIN [Concomitant]
  7. LEVEMIR [Concomitant]
  8. NOVOLOG [Concomitant]
  9. LOVAZA [Concomitant]
  10. LIPITOR [Concomitant]
  11. CRESTOR [Suspect]
  12. SIMVASTATIN [Concomitant]
  13. RAMIPRIL [Concomitant]
  14. RAMIPRIL [Concomitant]
  15. METOPROLOL TARTRATE [Concomitant]
  16. ASPIRIN [Concomitant]
  17. NITROGLYCERIN [Concomitant]
  18. KLOR-CON [Concomitant]
  19. FUROSEMIDE [Concomitant]
  20. OXYBUTYN [Concomitant]
  21. PRILOSEC [Concomitant]
  22. SINGULAIR [Concomitant]
  23. FLUTICASONE PROPIONATE [Concomitant]
  24. AZAMCORT [Concomitant]
  25. FLOVENT [Concomitant]
  26. VENTOLIN [Concomitant]

REACTIONS (2)
  - PARKINSONISM [None]
  - TREMOR [None]
